FAERS Safety Report 17358451 (Version 1)
Quarter: 2020Q1

REPORT INFORMATION
  Report Type: Report from Study
  Country: DE (occurrence: DE)
  Receive Date: 20200201
  Receipt Date: 20200201
  Transmission Date: 20200409
  Serious: Yes (Hospitalization)
  Sender: FDA-Public Use
  Company Number: DE-BAYER-2019-030201

PATIENT
  Age: 81 Year
  Sex: Male
  Weight: 70 kg

DRUGS (17)
  1. IBUPROFEN. [Concomitant]
     Active Substance: IBUPROFEN
     Dosage: 600 MG, TID
     Dates: start: 201608
  2. NOVALGIN (METAMIZOLE SODIUM) [Concomitant]
     Active Substance: METAMIZOLE SODIUM
     Dosage: DAILY DOSE 130 GTT
     Dates: start: 201606
  3. ZOMETA [Concomitant]
     Active Substance: ZOLEDRONIC ACID
     Indication: PROSTATE CANCER
     Dosage: INJECTION EVERY 4 WEEKS
     Dates: start: 201505
  4. DOCETAXEL. [Concomitant]
     Active Substance: DOCETAXEL
     Indication: PROSTATE CANCER
     Dosage: 3 CYCLES
     Dates: start: 201607, end: 201609
  5. XOFIGO [Suspect]
     Active Substance: RADIUM RA-223 DICHLORIDE
     Indication: PROSTATE CANCER METASTATIC
     Dosage: DAILY DOSE 3.5 MBQ
     Dates: start: 20151130
  6. XOFIGO [Suspect]
     Active Substance: RADIUM RA-223 DICHLORIDE
     Indication: METASTASES TO BONE
     Dosage: DAILY DOSE 3.5 MBQ
     Dates: start: 20151228
  7. CONCOR [Concomitant]
     Active Substance: BISOPROLOL FUMARATE
     Dosage: DAILY DOSE 2.5 MG
     Dates: start: 2010
  8. XOFIGO [Suspect]
     Active Substance: RADIUM RA-223 DICHLORIDE
     Indication: PROSTATE CANCER METASTATIC
     Dosage: DAILY DOSE 3.5 MBQ
     Dates: start: 20160125
  9. XOFIGO [Suspect]
     Active Substance: RADIUM RA-223 DICHLORIDE
     Indication: PROSTATE CANCER METASTATIC
     Dosage: DAILY DOSE 3.5 MBQ
     Dates: start: 20160418
  10. TILIDIN COMP [Concomitant]
     Active Substance: NALOXONE HYDROCHLORIDE\TILIDINE HYDROCHLORIDE
     Dosage: 100 MG, BID
     Route: 048
     Dates: start: 20160218, end: 20160606
  11. FENTANYL. [Concomitant]
     Active Substance: FENTANYL
     Dosage: 50 MCG/H CONTINOUS
     Route: 061
     Dates: start: 20160606, end: 201608
  12. XOFIGO [Suspect]
     Active Substance: RADIUM RA-223 DICHLORIDE
     Indication: PROSTATE CANCER METASTATIC
     Dosage: DAILY DOSE 3.575 MBQ
     Dates: start: 20160222
  13. XOFIGO [Suspect]
     Active Substance: RADIUM RA-223 DICHLORIDE
     Indication: PROSTATE CANCER METASTATIC
     Dosage: DAILY DOSE 3.55 MBQ
     Dates: start: 20160321
  14. FENTANYL. [Concomitant]
     Active Substance: FENTANYL
     Dosage: 100 MCG/H CONTINOUS
     Route: 061
     Dates: start: 201608
  15. FIRMAGON [Concomitant]
     Active Substance: DEGARELIX ACETATE
     Indication: PROSTATE CANCER
     Dosage: INJECTION EVERY 3 MONTHS
     Dates: start: 201311
  16. DOCETAXEL. [Concomitant]
     Active Substance: DOCETAXEL
     Indication: PROSTATE CANCER
     Dosage: 3 CYCLES
     Dates: start: 201611, end: 201612
  17. TILIDIN [Concomitant]
     Active Substance: NALOXONE HYDROCHLORIDE\TILIDINE HYDROCHLORIDE
     Dosage: 50 MG, BID
     Route: 048
     Dates: start: 20160115, end: 20160217

REACTIONS (2)
  - Fracture [Recovered/Resolved]
  - Femur fracture [Recovered/Resolved with Sequelae]

NARRATIVE: CASE EVENT DATE: 20160918
